FAERS Safety Report 6053878-2 (Version None)
Quarter: 2009Q1

REPORT INFORMATION
  Report Type: 
  Country: None (occurrence: None)
  Receive Date: 20090127
  Receipt Date: 20090119
  Transmission Date: 20090719
  Serious: Yes (Life-Threatening)
  Sender: FDA-Public Use
  Company Number: FR-GENENTECH-275893

PATIENT
  Sex: Female

DRUGS (6)
  1. HERCEPTIN [Suspect]
     Indication: BREAST CANCER
     Dosage: UNK
     Route: 042
     Dates: start: 20081204, end: 20081204
  2. SULFAMETHOXAZOLE AND TRIMETHOPRIM [Suspect]
     Indication: MUCOSAL INFLAMMATION
     Dosage: UNK
     Route: 048
     Dates: start: 20080930, end: 20081201
  3. DOCETAXEL [Suspect]
     Indication: BREAST CANCER
     Dosage: UNK
     Route: 042
     Dates: start: 20081204, end: 20081204
  4. ABACAVIR SULFATE/LAMIVUDINE [Concomitant]
     Indication: HIV INFECTION
     Dosage: UNK
  5. LOPINAVIR AND RITONAVIR [Concomitant]
     Indication: HIV INFECTION
     Dosage: UNK
  6. LEVOTHYROXINE SODIUM [Concomitant]
     Indication: DRUG USE FOR UNKNOWN INDICATION

REACTIONS (2)
  - NEUTROPENIA [None]
  - STEVENS-JOHNSON SYNDROME [None]
